FAERS Safety Report 4623439-8 (Version None)
Quarter: 2005Q1

REPORT INFORMATION
  Report Type: 
  Country: None (occurrence: None)
  Receive Date: 20050330
  Receipt Date: 20050114
  Transmission Date: 20050727
  Serious: Yes (Hospitalization, Disabling)
  Sender: FDA-Public Use
  Company Number: US-MERCK-0501USA02254

PATIENT
  Age: 59 Year
  Sex: Female
  Weight: 104 kg

DRUGS (3)
  1. VIOXX [Suspect]
     Indication: ARTHRALGIA
     Route: 048
     Dates: start: 20000501, end: 20021209
  2. VIOXX [Suspect]
     Indication: ARTHRITIS
     Route: 048
     Dates: start: 20000501, end: 20021209
  3. NORVASC [Concomitant]
     Route: 065

REACTIONS (16)
  - ANGIOPATHY [None]
  - BLOOD CHOLESTEROL ABNORMAL [None]
  - BLOOD THYROID STIMULATING HORMONE DECREASED [None]
  - CARDIAC MURMUR [None]
  - CEREBRAL ARTERY OCCLUSION [None]
  - CEREBRAL ARTERY STENOSIS [None]
  - CEREBROVASCULAR ACCIDENT [None]
  - COMPUTERISED TOMOGRAM ABNORMAL [None]
  - EMOTIONAL DISTRESS [None]
  - FALL [None]
  - FIBULA FRACTURE [None]
  - GASTRIC DISORDER [None]
  - HYPERGLYCAEMIA [None]
  - HYPERTENSION [None]
  - NEUTROPHIL COUNT INCREASED [None]
  - OEDEMA PERIPHERAL [None]
